FAERS Safety Report 10171099 (Version 1)
Quarter: 2014Q2

REPORT INFORMATION
  Report Type: Spontaneous
  Country: US (occurrence: None)
  Receive Date: 20140513
  Receipt Date: 20140513
  Transmission Date: 20141212
  Serious: Yes (Hospitalization)
  Sender: FDA-Public Use
  Company Number: None

PATIENT
  Age: 71 Year
  Sex: Male

DRUGS (10)
  1. ZYTIGA, 250 MG, JANSSEN BIOTECH [Suspect]
     Indication: PRODUCT USED FOR UNKNOWN INDICATION
     Route: 048
     Dates: start: 20140117
  2. METFORMIN [Concomitant]
  3. COZAAR [Concomitant]
  4. CITRACAL [Concomitant]
  5. OMEPRAZOLE [Concomitant]
  6. CETIRIZINE [Concomitant]
  7. SPIRONOLACTONE [Concomitant]
  8. MONTELUKAST [Concomitant]
  9. LOVASTATIN [Concomitant]
  10. PROPHANOLOL [Concomitant]

REACTIONS (2)
  - Weight increased [None]
  - Pneumonia [None]
